FAERS Safety Report 9228004 (Version 1)
Quarter: 2013Q2

REPORT INFORMATION
  Report Type: Spontaneous
  Country: US (occurrence: None)
  Receive Date: 20130411
  Receipt Date: 20130411
  Transmission Date: 20140414
  Serious: Yes (Other)
  Sender: FDA-Public Use
  Company Number: None

PATIENT
  Age: 71 Year
  Sex: Female
  Weight: 66.23 kg

DRUGS (1)
  1. VOTRIENT [Suspect]
     Indication: MALIGNANT NERVOUS SYSTEM NEOPLASM
     Route: 048
     Dates: start: 201303

REACTIONS (1)
  - Hepatitis [None]
